FAERS Safety Report 10142600 (Version 1)
Quarter: 2014Q2

REPORT INFORMATION
  Report Type: Spontaneous
  Country: US (occurrence: US)
  Receive Date: 20140430
  Receipt Date: 20140430
  Transmission Date: 20141212
  Serious: Yes (Other)
  Sender: FDA-Public Use
  Company Number: US-ASTRAZENECA-2014SE27962

PATIENT
  Age: 66 Year
  Sex: Female

DRUGS (31)
  1. ZESTRIL [Suspect]
     Route: 048
  2. MORPHINE [Suspect]
     Route: 065
  3. JANUVIA [Concomitant]
     Route: 048
  4. LYRICA [Concomitant]
     Route: 048
  5. PROTONIX [Concomitant]
     Route: 048
  6. KLONOPIN [Concomitant]
     Route: 048
  7. NORCO [Concomitant]
     Dosage: 5-325 MG PER TABLET
     Route: 048
  8. LOPRESSOR [Concomitant]
     Route: 048
  9. ALTACE [Concomitant]
     Route: 048
  10. URECHOLINE [Concomitant]
     Route: 048
  11. LASIX [Concomitant]
     Route: 048
  12. ONE A DAY [Concomitant]
     Route: 048
  13. VITAMIN B-12 [Concomitant]
     Route: 048
  14. VOLTAREN [Concomitant]
     Route: 048
  15. SYNTHROID [Concomitant]
     Route: 048
  16. ZETIA [Concomitant]
     Route: 048
  17. CYMBALTA [Concomitant]
     Route: 048
  18. SINGULAIR [Concomitant]
     Route: 048
  19. KLOR-CON M20 [Concomitant]
     Route: 048
  20. PRAVACHOL [Concomitant]
     Route: 048
  21. NOVOLIN 70/30 [Concomitant]
     Dosage: 100 UNIT/ML
     Route: 030
  22. FERROUS SULFATE [Concomitant]
     Route: 048
  23. PHENERGAN [Concomitant]
     Route: 048
  24. PAMELOR [Concomitant]
     Route: 048
  25. FLOMAX [Concomitant]
     Route: 048
  26. XOPENEX [Concomitant]
     Dosage: 1.25 MG/3 ML
  27. OYSTER SHELL CALCIUM-VIT D3 [Concomitant]
     Dosage: 500 MG(1.250MG)+400 UNIT
     Route: 048
  28. PROVENTIL VENTOLIN [Concomitant]
     Dosage: 2.5 MG/3 ML (0.083%)
  29. ASPIRIN [Concomitant]
     Route: 048
  30. COLACE [Concomitant]
     Route: 048
  31. FLOVENT HFA [Concomitant]
     Route: 055

REACTIONS (10)
  - Convulsion [Unknown]
  - Type 2 diabetes mellitus [Unknown]
  - Hypothyroidism [Unknown]
  - Hypertension [Unknown]
  - Hyperlipidaemia [Unknown]
  - Osteoarthritis [Unknown]
  - Dizziness [Unknown]
  - Oedema peripheral [Unknown]
  - Gastrooesophageal reflux disease [Unknown]
  - Hypersensitivity [Unknown]
